FAERS Safety Report 7450973-8 (Version None)
Quarter: 2011Q2

REPORT INFORMATION
  Report Type: 
  Country: None (occurrence: None)
  Receive Date: 20110502
  Receipt Date: 20110204
  Transmission Date: 20111010
  Serious: Yes (Other)
  Sender: FDA-Public Use
  Company Number: IT-ROCHE-759015

PATIENT
  Sex: Female

DRUGS (2)
  1. TORADOL [Suspect]
     Dosage: DOSE: 20 MG/ML
     Route: 048
     Dates: start: 20101228, end: 20101230
  2. SIRDALUD [Suspect]
     Route: 048
     Dates: start: 20101228, end: 20101230

REACTIONS (1)
  - EYELID OEDEMA [None]
